FAERS Safety Report 5886192-6 (Version None)
Quarter: 2008Q3

REPORT INFORMATION
  Report Type: 
  Country: None (occurrence: None)
  Receive Date: 20080917
  Receipt Date: 20080905
  Transmission Date: 20090109
  Serious: Yes (Hospitalization, Other)
  Sender: FDA-Public Use
  Company Number: GB-ROCHE-583954

PATIENT
  Age: 57 Year
  Sex: Female

DRUGS (5)
  1. CAPECITABINE [Suspect]
     Dosage: DAYS 1-14
     Route: 065
  2. TRASTUZUMAB [Suspect]
     Indication: BREAST CANCER METASTATIC
     Dosage: WEEKLY
     Route: 065
     Dates: start: 20030301
  3. TRASTUZUMAB [Suspect]
     Route: 065
     Dates: start: 20030301
  4. EPIRUBICIN [Suspect]
     Dosage: DAY 1. SIX CYCLES COMPLETED.
     Route: 065
  5. VINORELBINE [Suspect]
     Dosage: DAYS 1 AND 8, EVERY 3 WEEKS. 6 CYCLES COMPLETED
     Route: 065

REACTIONS (5)
  - CARDIAC FAILURE [None]
  - CEREBELLAR ATAXIA [None]
  - DISEASE PROGRESSION [None]
  - EJECTION FRACTION DECREASED [None]
  - LYMPHOEDEMA [None]
